FAERS Safety Report 13705678 (Version 5)
Quarter: 2017Q3

REPORT INFORMATION
  Report Type: Spontaneous
  Country: US (occurrence: US)
  Receive Date: 20170630
  Receipt Date: 20170901
  Transmission Date: 20171127
  Serious: No
  Sender: FDA-Public Use
  Company Number: US-STRONGBRIDGE BIOPHARMA-SR-KEV-2017-032

PATIENT
  Age: 61 Year
  Sex: Female

DRUGS (6)
  1. KEVEYIS [Suspect]
     Active Substance: DICHLORPHENAMIDE
     Indication: FAMILIAL PERIODIC PARALYSIS
     Route: 048
     Dates: start: 201610
  2. TOPAMAX [Concomitant]
     Active Substance: TOPIRAMATE
     Indication: MIGRAINE
  3. XOLAIR [Concomitant]
     Active Substance: OMALIZUMAB
     Indication: HYPERSENSITIVITY
  4. KEVEYIS [Suspect]
     Active Substance: DICHLORPHENAMIDE
     Dosage: HALF TABLET IN THE MORNING, HALF TABLET IN THE NOON, HALF TABLET AT 5 PM, AND EITHER ONE-FOURTH TABL
     Route: 048
  5. POTASSIUM [Concomitant]
     Active Substance: POTASSIUM
     Indication: DISEASE RECURRENCE
     Dosage: 80 MEQ DAILY, SOME DAYS  60 MEQ AND SOME DAYS 100 MEQ
  6. ACETAZOLAMIDE. [Suspect]
     Active Substance: ACETAZOLAMIDE
     Indication: PRODUCT USED FOR UNKNOWN INDICATION
     Dosage: 250 MG IN THE AFTERNOON AND 250 MG IN THE EVENING

REACTIONS (16)
  - Hallucination [Unknown]
  - Fear of open spaces [Recovered/Resolved]
  - Insomnia [Unknown]
  - Confusional state [Unknown]
  - Muscle spasms [Recovered/Resolved]
  - Insomnia [Unknown]
  - Palpitations [Unknown]
  - Chest pain [Not Recovered/Not Resolved]
  - Adverse event [Recovered/Resolved]
  - Heart rate irregular [Not Recovered/Not Resolved]
  - Anxiety [Unknown]
  - Aphasia [Recovered/Resolved]
  - Blood pressure fluctuation [Unknown]
  - Thyroxine decreased [Unknown]
  - Bundle branch block [Unknown]
  - Weight increased [Not Recovered/Not Resolved]

NARRATIVE: CASE EVENT DATE: 20161015
